FAERS Safety Report 22697878 (Version 3)
Quarter: 2024Q3

REPORT INFORMATION
  Report Type: Report from Study
  Country: US (occurrence: US)
  Receive Date: 20230712
  Receipt Date: 20240822
  Transmission Date: 20241017
  Serious: No
  Sender: NOVARTIS
  Company Number: US-002147023-NVSC2023US154932

PATIENT

DRUGS (1)
  1. KESIMPTA [Suspect]
     Active Substance: OFATUMUMAB
     Indication: Product used for unknown indication
     Dosage: UNK
     Route: 065
     Dates: start: 20230623

REACTIONS (8)
  - Eye pruritus [Unknown]
  - Back pain [Unknown]
  - Intervertebral disc protrusion [Unknown]
  - Intervertebral disc disorder [Unknown]
  - Musculoskeletal chest pain [Unknown]
  - Fatigue [Unknown]
  - Pain [Unknown]
  - Weight increased [Unknown]
